FAERS Safety Report 25612588 (Version 1)
Quarter: 2025Q3

REPORT INFORMATION
  Report Type: Spontaneous
  Country: CN (occurrence: CN)
  Receive Date: 20250728
  Receipt Date: 20250728
  Transmission Date: 20251020
  Serious: Yes (Hospitalization)
  Sender: MYLAN
  Company Number: CN-MYLANLABS-2025M1062627

PATIENT
  Age: 25 Year
  Sex: Female

DRUGS (5)
  1. NITROGLYCERIN [Suspect]
     Active Substance: NITROGLYCERIN
     Indication: Retinal artery occlusion
  2. ATROPINE [Suspect]
     Active Substance: ATROPINE
     Indication: Retinal artery occlusion
  3. LIDOCAINE [Suspect]
     Active Substance: LIDOCAINE
     Indication: Retinal artery occlusion
  4. HYALURONIDASE [Suspect]
     Active Substance: HYALURONIDASE
     Indication: Retinal artery occlusion
  5. DEXAMETHASONE [Suspect]
     Active Substance: DEXAMETHASONE
     Indication: Retinal artery occlusion

REACTIONS (2)
  - Drug ineffective for unapproved indication [Unknown]
  - Off label use [Unknown]

NARRATIVE: CASE EVENT DATE: 20240325
